FAERS Safety Report 9891334 (Version 1)
Quarter: 2014Q1

REPORT INFORMATION
  Report Type: Spontaneous
  Country: US (occurrence: None)
  Receive Date: 20140211
  Receipt Date: 20140211
  Transmission Date: 20141002
  Serious: Yes (Hospitalization)
  Sender: FDA-Public Use
  Company Number: None

PATIENT
  Age: 58 Year
  Sex: Male
  Weight: 67.4 kg

DRUGS (2)
  1. DOXORUBICIN [Suspect]
     Route: 042
     Dates: start: 20131105
  2. VINCRISTINE [Suspect]
     Route: 042
     Dates: start: 20131105

REACTIONS (2)
  - Bone marrow failure [None]
  - Normochromic normocytic anaemia [None]
